FAERS Safety Report 21244154 (Version 2)
Quarter: 2022Q4

REPORT INFORMATION
  Report Type: Spontaneous
  Country: CN (occurrence: CN)
  Receive Date: 20220823
  Receipt Date: 20221010
  Transmission Date: 20230113
  Serious: Yes (Other)
  Sender: FDA-Public Use
  Company Number: CN-OTSUKA-2022_041559

PATIENT
  Age: 70 Year
  Sex: Female
  Weight: 72 kg

DRUGS (1)
  1. TOLVAPTAN [Suspect]
     Active Substance: TOLVAPTAN
     Indication: Hyponatraemia
     Dosage: 15 MG, QD
     Route: 048
     Dates: start: 20220805, end: 20220808

REACTIONS (2)
  - Hypokalaemia [Recovering/Resolving]
  - Urine output increased [Recovering/Resolving]

NARRATIVE: CASE EVENT DATE: 20220807
